FAERS Safety Report 8348558-4 (Version None)
Quarter: 2012Q2

REPORT INFORMATION
  Report Type: 
  Country: None (occurrence: None)
  Receive Date: 20120509
  Receipt Date: 20120426
  Transmission Date: 20120825
  Serious: Yes (Death, Life-Threatening, Hospitalization, Other)
  Sender: FDA-Public Use
  Company Number: US-MYLANLABS-2009AL002394

PATIENT
  Sex: Female
  Weight: 69.4 kg

DRUGS (13)
  1. METFORMIN HCL [Concomitant]
  2. ASPIRIN [Concomitant]
  3. HEPARIN [Concomitant]
  4. AUGMENTIN [Concomitant]
  5. EPINEPHRINE [Concomitant]
  6. LASIX [Concomitant]
  7. DIOVAN HCT [Concomitant]
     Dosage: 160/12.5MG
  8. ATROPINE [Concomitant]
  9. COREG [Concomitant]
  10. LISINOPRIL [Concomitant]
  11. LEVOTHYROXINE SODIUM [Concomitant]
  12. DIGOXIN [Suspect]
     Route: 048
     Dates: start: 20060523, end: 20080427
  13. COUMADIN [Concomitant]

REACTIONS (39)
  - BUNDLE BRANCH BLOCK [None]
  - ATRIAL FIBRILLATION [None]
  - OBESITY [None]
  - CARDIOMEGALY [None]
  - VENTRICULAR FIBRILLATION [None]
  - INJURY [None]
  - TYPE 2 DIABETES MELLITUS [None]
  - CONGESTIVE CARDIOMYOPATHY [None]
  - CHEST PAIN [None]
  - CYANOSIS [None]
  - ILL-DEFINED DISORDER [None]
  - PHARYNGEAL HAEMORRHAGE [None]
  - MECHANICAL VENTILATION [None]
  - MUSCULOSKELETAL PAIN [None]
  - OEDEMA [None]
  - PULMONARY CONGESTION [None]
  - TACHYCARDIA [None]
  - DRY SKIN [None]
  - ABDOMINAL DISTENSION [None]
  - DEATH [None]
  - CARDIAC FAILURE CONGESTIVE [None]
  - ECONOMIC PROBLEM [None]
  - DYSPNOEA [None]
  - HYPOTHYROIDISM [None]
  - NIGHT SWEATS [None]
  - VIRAL MYOCARDITIS [None]
  - PAIN [None]
  - SLEEP APNOEA SYNDROME [None]
  - PYREXIA [None]
  - PAROTID GLAND ENLARGEMENT [None]
  - PLEURITIC PAIN [None]
  - HEART RATE IRREGULAR [None]
  - PHYSICAL EXAMINATION ABNORMAL [None]
  - CARDIAC ARREST [None]
  - CARDIO-RESPIRATORY ARREST [None]
  - ENDOTRACHEAL INTUBATION [None]
  - PAROTITIS [None]
  - INTERVERTEBRAL DISC DEGENERATION [None]
  - LYMPHADENOPATHY [None]
